FAERS Safety Report 14829732 (Version 4)
Quarter: 2018Q4

REPORT INFORMATION
  Report Type: Report from Study
  Country: JP (occurrence: JP)
  Receive Date: 20180430
  Receipt Date: 20181101
  Transmission Date: 20190204
  Serious: Yes (Hospitalization)
  Sender: FDA-Public Use
  Company Number: JP-CELGENEUS-JPN-20180409212

PATIENT
  Age: 74 Year
  Sex: Male

DRUGS (52)
  1. ABRAXANE [Suspect]
     Active Substance: PACLITAXEL
     Dosage: 100 MILLIGRAM/SQ. METER
     Route: 042
     Dates: start: 20180112, end: 20180112
  2. CARBOPLATIN. [Concomitant]
     Active Substance: CARBOPLATIN
     Dosage: 6.0 AUC
     Route: 042
     Dates: start: 20180226, end: 20180226
  3. MAGNESIUM OXIDE. [Concomitant]
     Active Substance: MAGNESIUM OXIDE
     Indication: CONSTIPATION
     Dosage: 330 MILLIGRAM
     Route: 048
     Dates: start: 20171225
  4. ABRAXANE [Suspect]
     Active Substance: PACLITAXEL
     Indication: NON-SMALL CELL LUNG CANCER
     Dosage: 100 MILLIGRAM/SQ. METER
     Route: 042
     Dates: start: 20171220, end: 20171220
  5. ABRAXANE [Suspect]
     Active Substance: PACLITAXEL
     Dosage: 100 MILLIGRAM/SQ. METER
     Route: 042
     Dates: start: 20180205, end: 20180205
  6. MEDI4736 (DURVALUMAB) [Concomitant]
     Active Substance: DURVALUMAB
     Indication: NON-SMALL CELL LUNG CANCER
     Dosage: 1500 MILLIGRAM
     Route: 042
     Dates: start: 20171220, end: 20171220
  7. MEDI4736 (DURVALUMAB) [Concomitant]
     Active Substance: DURVALUMAB
     Dosage: 1500 MILLIGRAM
     Route: 042
     Dates: start: 20180625, end: 20180625
  8. TREMELIMUMAB. [Concomitant]
     Active Substance: TREMELIMUMAB
     Dosage: 75 MILLIGRAM
     Route: 042
     Dates: start: 20180205, end: 20180205
  9. ZYPREXA [Concomitant]
     Active Substance: OLANZAPINE
     Indication: ANXIETY
     Dosage: 2.5 MILLIGRAM
     Route: 048
     Dates: start: 20171227
  10. PROPOFOL. [Concomitant]
     Active Substance: PROPOFOL
     Indication: PRODUCT USED FOR UNKNOWN INDICATION
     Dosage: 490 MILLIGRAM
     Route: 042
     Dates: start: 20180322, end: 20180322
  11. ABRAXANE [Suspect]
     Active Substance: PACLITAXEL
     Dosage: 100 MILLIGRAM/SQ. METER
     Route: 042
     Dates: start: 20180219, end: 20180219
  12. CARBOPLATIN. [Concomitant]
     Active Substance: CARBOPLATIN
     Dosage: 6.0 AUC
     Route: 042
     Dates: start: 20180205, end: 20180205
  13. MEDI4736 (DURVALUMAB) [Concomitant]
     Active Substance: DURVALUMAB
     Dosage: 1500 MILLIGRAM
     Route: 042
     Dates: start: 20180112, end: 20180112
  14. TREMELIMUMAB. [Concomitant]
     Active Substance: TREMELIMUMAB
     Dosage: 75 MILLIGRAM
     Route: 042
     Dates: start: 20180112, end: 20180112
  15. TREMELIMUMAB. [Concomitant]
     Active Substance: TREMELIMUMAB
     Dosage: 75 MILLIGRAM
     Route: 042
     Dates: start: 20180528, end: 20180528
  16. EPINASTINE HYDROCHLORIDE. [Concomitant]
     Active Substance: EPINASTINE HYDROCHLORIDE
     Indication: RHINITIS ALLERGIC
     Dosage: 20 MILLIGRAM
     Route: 048
  17. CARBAZOCHROME SODIUM SULFONATE [Concomitant]
     Active Substance: CARBAZOCHROME SODIUM SULFONATE
     Indication: LUNG NEOPLASM MALIGNANT
     Dosage: 90 MILLIGRAM
     Route: 048
     Dates: start: 20171206
  18. MAGNESIUM OXIDE. [Concomitant]
     Active Substance: MAGNESIUM OXIDE
     Dosage: 990 MILLIGRAM
     Route: 048
     Dates: start: 20171225
  19. IRBESARTAN + AMLODIPINE BESILATE [Concomitant]
     Indication: PRODUCT USED FOR UNKNOWN INDICATION
     Dosage: 45 MILLIGRAM
     Route: 065
  20. SYMBICORT [Concomitant]
     Active Substance: BUDESONIDE\FORMOTEROL FUMARATE DIHYDRATE
     Indication: PRODUCT USED FOR UNKNOWN INDICATION
     Route: 055
  21. GABEXATE MESILATE [Concomitant]
     Active Substance: GABEXATE MESYLATE
     Indication: PRODUCT USED FOR UNKNOWN INDICATION
     Dosage: 170 MILLIGRAM
     Route: 042
     Dates: start: 20180320, end: 20180320
  22. MEDI4736 (DURVALUMAB) [Concomitant]
     Active Substance: DURVALUMAB
     Dosage: 1500 MILLIGRAM
     Route: 042
     Dates: start: 20180402, end: 20180402
  23. MEDI4736 (DURVALUMAB) [Concomitant]
     Active Substance: DURVALUMAB
     Dosage: 1500 MILLIGRAM
     Route: 042
     Dates: start: 20180820, end: 20180820
  24. BUDESONIDE W/FORMOTEROL FUMARATE [Concomitant]
     Active Substance: BUDESONIDE\FORMOTEROL FUMARATE
     Indication: LUNG NEOPLASM MALIGNANT
     Dosage: 2.0000 PUFF
     Route: 055
  25. ENSURE PROTEIN-BASED POLYMERIC DIET [Concomitant]
     Indication: LUNG NEOPLASM MALIGNANT
     Dosage: 250 MILLILITER
     Route: 048
     Dates: start: 20171225
  26. CORTRIL [Concomitant]
     Active Substance: HYDROCORTISONE
     Indication: PRODUCT USED FOR UNKNOWN INDICATION
     Dosage: 20 MILLIGRAM
     Route: 048
     Dates: start: 20180418
  27. ABRAXANE [Suspect]
     Active Substance: PACLITAXEL
     Dosage: 100 MILLIGRAM/SQ. METER
     Route: 042
     Dates: start: 20180213, end: 20180213
  28. MEDI4736 (DURVALUMAB) [Concomitant]
     Active Substance: DURVALUMAB
     Dosage: 1500 MILLIGRAM
     Route: 042
     Dates: start: 20180528, end: 20180528
  29. TREMELIMUMAB. [Concomitant]
     Active Substance: TREMELIMUMAB
     Indication: NON-SMALL CELL LUNG CANCER
     Dosage: 75 MILLIGRAM
     Route: 042
     Dates: start: 20171220, end: 20171220
  30. CARVEDILOL. [Concomitant]
     Active Substance: CARVEDILOL
     Indication: HYPERTENSION
     Dosage: 10 MILLIGRAM
     Route: 048
  31. LIPITOR [Concomitant]
     Active Substance: ATORVASTATIN CALCIUM
     Indication: HYPERLIPIDAEMIA
     Dosage: 10 MILLIGRAM
     Route: 048
  32. LANSOPRAZOLE. [Concomitant]
     Active Substance: LANSOPRAZOLE
     Indication: GASTRITIS
     Dosage: 15 MILLIGRAM
     Route: 048
  33. AMBROXOL HYDROCHLORIDE [Concomitant]
     Active Substance: AMBROXOL HYDROCHLORIDE
     Indication: LUNG NEOPLASM MALIGNANT
     Dosage: 45 MILLIGRAM
     Route: 048
  34. CODEINE PHOSPHATE HYDRATE [Concomitant]
     Active Substance: CODEINE PHOSPHATE
     Indication: LUNG NEOPLASM MALIGNANT
     Dosage: 40 MILLIGRAM
     Route: 048
  35. ABRAXANE [Suspect]
     Active Substance: PACLITAXEL
     Dosage: 100 MILLIGRAM/SQ. METER
     Route: 042
     Dates: start: 20171227, end: 20171227
  36. ABRAXANE [Suspect]
     Active Substance: PACLITAXEL
     Dosage: 100 MILLIGRAM/SQ. METER
     Route: 042
     Dates: start: 20180226, end: 20180226
  37. CARBOPLATIN. [Concomitant]
     Active Substance: CARBOPLATIN
     Indication: NON-SMALL CELL LUNG CANCER
     Dosage: 6.0 AUC
     Route: 042
     Dates: start: 20171220, end: 20171220
  38. CARBOPLATIN. [Concomitant]
     Active Substance: CARBOPLATIN
     Dosage: 6.0 AUC
     Route: 042
     Dates: start: 20180112, end: 20180112
  39. GLYCEROL [Concomitant]
     Active Substance: GLYCERIN
     Indication: CONSTIPATION
     Dosage: 60 MILLILITER
     Route: 054
     Dates: start: 20171225
  40. MEDI4736 (DURVALUMAB) [Concomitant]
     Active Substance: DURVALUMAB
     Dosage: 1500 MILLIGRAM
     Route: 042
     Dates: start: 20180205, end: 20180205
  41. MEDI4736 (DURVALUMAB) [Concomitant]
     Active Substance: DURVALUMAB
     Dosage: 1500 MILLIGRAM
     Route: 042
     Dates: start: 20180226, end: 20180226
  42. MEDI4736 (DURVALUMAB) [Concomitant]
     Active Substance: DURVALUMAB
     Dosage: 1500 MILLIGRAM
     Route: 042
     Dates: start: 20180723, end: 20180723
  43. MEDI4736 (DURVALUMAB) [Concomitant]
     Active Substance: DURVALUMAB
     Dosage: 1500 MILLIGRAM
     Route: 042
     Dates: start: 20180914, end: 20180914
  44. ABRAXANE [Suspect]
     Active Substance: PACLITAXEL
     Dosage: 100 MILLIGRAM/SQ. METER
     Route: 042
     Dates: start: 20180104, end: 20180104
  45. ABRAXANE [Suspect]
     Active Substance: PACLITAXEL
     Dosage: 100 MILLIGRAM/SQ. METER
     Route: 042
     Dates: start: 20180119, end: 20180119
  46. ABRAXANE [Suspect]
     Active Substance: PACLITAXEL
     Dosage: 100 MILLIGRAM/SQ. METER
     Route: 042
     Dates: start: 20180126, end: 20180126
  47. ABRAXANE [Suspect]
     Active Substance: PACLITAXEL
     Dosage: 100 MILLIGRAM/SQ. METER
     Route: 042
     Dates: start: 20180305, end: 20180305
  48. TREMELIMUMAB. [Concomitant]
     Active Substance: TREMELIMUMAB
     Dosage: 75 MILLIGRAM
     Route: 042
     Dates: start: 20180226, end: 20180226
  49. LIPITOR [Concomitant]
     Active Substance: ATORVASTATIN CALCIUM
     Dosage: 15 MILLIGRAM
     Route: 048
  50. AMLODIPINE BESILATE [Concomitant]
     Active Substance: AMLODIPINE BESYLATE
     Indication: HYPERTENSION
     Dosage: 1 DOSAGE FORMS
     Route: 048
  51. MAGNESIUM OXIDE. [Concomitant]
     Active Substance: MAGNESIUM OXIDE
     Dosage: 660 MILLIGRAM
     Route: 048
     Dates: start: 20171225
  52. AIMIX HD [Concomitant]
     Indication: PRODUCT USED FOR UNKNOWN INDICATION
     Route: 065

REACTIONS (1)
  - Hypopituitarism [Not Recovered/Not Resolved]

NARRATIVE: CASE EVENT DATE: 20180402
